FAERS Safety Report 4687748-9 (Version None)
Quarter: 2005Q2

REPORT INFORMATION
  Report Type: 
  Country: None (occurrence: None)
  Receive Date: 20050610
  Receipt Date: 20050310
  Transmission Date: 20051028
  Serious: Yes (Hospitalization, Other)
  Sender: FDA-Public Use
  Company Number: US-MERCK-0503USA02102

PATIENT
  Age: 50 Year
  Sex: Female
  Weight: 84 kg

DRUGS (2)
  1. VIOXX [Suspect]
     Indication: BACK PAIN
     Route: 048
     Dates: start: 20000101, end: 20040501
  2. VIOXX [Suspect]
     Indication: ARTHRITIS
     Route: 048
     Dates: start: 20000101, end: 20040501

REACTIONS (16)
  - ANGINA PECTORIS [None]
  - ANXIETY [None]
  - CEREBROVASCULAR ACCIDENT [None]
  - CONSTIPATION [None]
  - CORONARY ARTERY DISEASE [None]
  - DEMYELINATION [None]
  - DIVERTICULITIS [None]
  - DIVERTICULUM [None]
  - DYSLIPIDAEMIA [None]
  - EMOTIONAL DISTRESS [None]
  - FIBROMYALGIA [None]
  - HYPERTENSION [None]
  - INTESTINAL POLYP [None]
  - MYOCARDIAL INFARCTION [None]
  - PELVIC PAIN [None]
  - SYNOVIAL CYST [None]
